FAERS Safety Report 14847005 (Version 2)
Quarter: 2023Q4

REPORT INFORMATION
  Report Type: Spontaneous
  Country: US (occurrence: US)
  Receive Date: 20180504
  Receipt Date: 20231025
  Transmission Date: 20240109
  Serious: Yes (Death, Other)
  Sender: FDA-Public Use
  Company Number: US-SA-2016SA207379

PATIENT
  Age: 5 Year
  Sex: Male

DRUGS (6)
  1. ZOLPIDEM TARTRATE [Suspect]
     Active Substance: ZOLPIDEM TARTRATE
     Indication: Insomnia
     Dosage: 5 MG,UNK
     Route: 048
  2. ATORVASTATIN [Suspect]
     Active Substance: ATORVASTATIN
     Indication: Hyperlipidaemia
     Dosage: 10 MG,UNK
     Route: 065
  3. ALPRAZOLAM [Suspect]
     Active Substance: ALPRAZOLAM
     Indication: Insomnia
     Dosage: 5 MG, UNK
     Route: 048
  4. ALPRAZOLAM [Suspect]
     Active Substance: ALPRAZOLAM
     Dosage: 5 MG,UNK
     Route: 048
  5. MOMETASONE FUROATE [Concomitant]
     Active Substance: MOMETASONE FUROATE
     Dosage: UNK UNK,UNK
     Route: 065
  6. FLONASE SENSIMIST ALLERGY RELIEF [Concomitant]
     Active Substance: FLUTICASONE FUROATE

REACTIONS (15)
  - Completed suicide [Fatal]
  - Depression [Unknown]
  - Abnormal behaviour [Unknown]
  - Irritability [Unknown]
  - Aggression [Unknown]
  - Staring [Unknown]
  - Personality change [Unknown]
  - Paranoia [Unknown]
  - Fear [Unknown]
  - Lethargy [Unknown]
  - Myalgia [Unknown]
  - Eczema [Unknown]
  - Hypoacusis [Unknown]
  - Amnesia [Unknown]
  - Insomnia [Unknown]
